FAERS Safety Report 23129872 (Version 1)
Quarter: 2023Q4

REPORT INFORMATION
  Report Type: Report from Study
  Country: US (occurrence: None)
  Receive Date: 20231031
  Receipt Date: 20231031
  Transmission Date: 20240110
  Serious: Yes (Hospitalization)
  Sender: FDA-Public Use
  Company Number: 2023A242463

PATIENT
  Sex: Female

DRUGS (6)
  1. LYNPARZA [Suspect]
     Active Substance: OLAPARIB
     Indication: Ovarian cancer
     Route: 048
     Dates: start: 20230804
  2. ARMOUR THYROID [Concomitant]
     Active Substance: THYROID, PORCINE
  3. MAGNESIUM [Concomitant]
     Active Substance: MAGNESIUM
  4. MELATONIN [Concomitant]
     Active Substance: MELATONIN
  5. NORCO [Concomitant]
     Active Substance: ACETAMINOPHEN\HYDROCODONE BITARTRATE
  6. PERCOCET [Concomitant]
     Active Substance: ACETAMINOPHEN\OXYCODONE HYDROCHLORIDE

REACTIONS (3)
  - Pyrexia [Unknown]
  - Anaemia [Unknown]
  - Headache [Unknown]
